FAERS Safety Report 18117902 (Version 3)
Quarter: 2020Q3

REPORT INFORMATION
  Report Type: Spontaneous
  Country: IT (occurrence: IT)
  Receive Date: 20200806
  Receipt Date: 20200916
  Transmission Date: 20201103
  Serious: Yes (Other)
  Sender: FDA-Public Use
  Company Number: IT-SUN PHARMACEUTICAL INDUSTRIES LTD-2020RR-256220

PATIENT
  Age: 10 Year
  Sex: Female
  Weight: 23 kg

DRUGS (32)
  1. TRAMADOL. [Suspect]
     Active Substance: TRAMADOL
     Indication: PAIN
     Dosage: 5 MILLIGRAM/KILOGRAM, DAILY
     Route: 065
  2. TRAZODONE [Suspect]
     Active Substance: TRAZODONE HYDROCHLORIDE
     Indication: ANXIETY
  3. ARIPIPRAZOLE. [Suspect]
     Active Substance: ARIPIPRAZOLE
     Indication: ANXIETY
     Dosage: 0.3 MILLIGRAM/KILOGRAM, DAILY
     Route: 065
  4. ACETAMINOPHEN. [Suspect]
     Active Substance: ACETAMINOPHEN
     Route: 065
  5. MELATONIN [Suspect]
     Active Substance: MELATONIN
     Indication: SLEEP DISORDER
     Dosage: 0.05 MILLIGRAM/KILOGRAM, DAILY
     Route: 065
  6. ALPRAZOLAM. [Suspect]
     Active Substance: ALPRAZOLAM
     Indication: ANXIETY
  7. MELATONIN [Suspect]
     Active Substance: MELATONIN
     Dosage: .05 MILLIGRAM/KILOGRAM
     Route: 065
  8. MELATONIN [Suspect]
     Active Substance: MELATONIN
     Dosage: .05 MILLIGRAM/KILOGRAM
     Route: 065
  9. TRAZODONE [Suspect]
     Active Substance: TRAZODONE HYDROCHLORIDE
     Indication: DEPRESSION
  10. ALPRAZOLAM. [Suspect]
     Active Substance: ALPRAZOLAM
     Indication: SLEEP DISORDER
  11. IBUPROFEN. [Suspect]
     Active Substance: IBUPROFEN
     Indication: PAIN
     Route: 065
  12. DIAZEPAM. [Suspect]
     Active Substance: DIAZEPAM
     Indication: PRODUCT USED FOR UNKNOWN INDICATION
     Dosage: 0.1 MILLIGRAM/KILOGRAM, DAILY
     Route: 065
  13. METAMIZOLE [Suspect]
     Active Substance: METAMIZOLE
     Indication: PAIN
     Dosage: 20 MILLIGRAM/KILOGRAM, DAILY
     Route: 065
  14. NIAPRAZINE [Suspect]
     Active Substance: NIAPRAZINE
     Dosage: 1 MILLIGRAM/KILOGRAM
     Route: 065
  15. TRAZODONE [Suspect]
     Active Substance: TRAZODONE HYDROCHLORIDE
     Indication: SLEEP DISORDER
  16. ARIPIPRAZOLE. [Suspect]
     Active Substance: ARIPIPRAZOLE
     Indication: SLEEP DISORDER
  17. ALPRAZOLAM. [Suspect]
     Active Substance: ALPRAZOLAM
     Indication: DEPRESSION
  18. ACETAMINOPHEN. [Suspect]
     Active Substance: ACETAMINOPHEN
     Indication: PAIN
     Route: 065
  19. IBUPROFEN. [Suspect]
     Active Substance: IBUPROFEN
     Route: 065
  20. CHLORPHENAMINE [Suspect]
     Active Substance: CHLORPHENIRAMINE MALEATE
     Indication: PRURITUS
     Dosage: 0.2 MILLIGRAM/KILOGRAM, DAILY
     Route: 065
  21. CHLORPHENAMINE [Suspect]
     Active Substance: CHLORPHENIRAMINE MALEATE
     Dosage: .2 MILLIGRAM/KILOGRAM
     Route: 065
  22. GABAPENTIN. [Suspect]
     Active Substance: GABAPENTIN
     Indication: PAIN
     Dosage: 25 MILLIGRAM/KILOGRAM, DAILY
     Route: 065
  23. MELATONIN [Suspect]
     Active Substance: MELATONIN
     Dosage: .05 MILLIGRAM/KILOGRAM
     Route: 065
  24. NIAPRAZINE [Suspect]
     Active Substance: NIAPRAZINE
     Indication: SLEEP DISORDER
     Dosage: 1 MILLIGRAM/KILOGRAM, DAILY
     Route: 065
  25. NIAPRAZINE [Suspect]
     Active Substance: NIAPRAZINE
     Dosage: 1 MILLIGRAM/KILOGRAM
     Route: 065
  26. CETRIZINE [Suspect]
     Active Substance: CETIRIZINE HYDROCHLORIDE
     Indication: PRURITUS
     Dosage: 1 MILLIGRAM/KILOGRAM, DAILY
     Route: 065
  27. TRAZODONE [Suspect]
     Active Substance: TRAZODONE HYDROCHLORIDE
     Dosage: 1 MILLIGRAM/KILOGRAM, DAILY
     Route: 065
  28. TRAZODONE [Suspect]
     Active Substance: TRAZODONE HYDROCHLORIDE
     Indication: DEPRESSION
  29. ALPRAZOLAM. [Suspect]
     Active Substance: ALPRAZOLAM
     Dosage: 0.01 MILLIGRAM/KILOGRAM, DAILY
     Route: 065
  30. TRAZODONE [Suspect]
     Active Substance: TRAZODONE HYDROCHLORIDE
     Indication: ANXIETY
  31. ARIPIPRAZOLE. [Suspect]
     Active Substance: ARIPIPRAZOLE
     Indication: DEPRESSION
  32. METAMIZOLE [Suspect]
     Active Substance: METAMIZOLE
     Dosage: 20 MILLIGRAM/KILOGRAM
     Route: 065

REACTIONS (4)
  - Agitation [Unknown]
  - Sleep disorder [Recovering/Resolving]
  - Drug ineffective [Unknown]
  - Confusional arousal [Unknown]
